FAERS Safety Report 11637079 (Version 3)
Quarter: 2015Q4

REPORT INFORMATION
  Report Type: Spontaneous
  Country: CA (occurrence: CA)
  Receive Date: 20151016
  Receipt Date: 20151027
  Transmission Date: 20160304
  Serious: Yes (Other)
  Sender: FDA-Public Use
  Company Number: CA-JNJFOC-20151011471

PATIENT
  Sex: Female

DRUGS (6)
  1. APIXABAN [Concomitant]
     Active Substance: APIXABAN
     Route: 065
  2. LANSOPRAZOLE. [Concomitant]
     Active Substance: LANSOPRAZOLE
     Route: 065
     Dates: start: 201408
  3. XARELTO [Suspect]
     Active Substance: RIVAROXABAN
     Indication: PULMONARY EMBOLISM
     Route: 048
     Dates: start: 201401, end: 20151013
  4. XARELTO [Suspect]
     Active Substance: RIVAROXABAN
     Indication: EMBOLISM VENOUS
     Route: 048
     Dates: start: 201401, end: 20151013
  5. SYMBICORT [Concomitant]
     Active Substance: BUDESONIDE\FORMOTEROL FUMARATE DIHYDRATE
     Route: 065
     Dates: start: 201402
  6. HEPARIN [Concomitant]
     Active Substance: HEPARIN SODIUM
     Indication: PULMONARY EMBOLISM
     Dosage: 1 OR 2 DOSES
     Route: 065
     Dates: start: 2014

REACTIONS (6)
  - Alopecia [Unknown]
  - Myalgia [Unknown]
  - Visual impairment [Unknown]
  - Vision blurred [Unknown]
  - Cataract [Unknown]
  - Anxiety [Unknown]

NARRATIVE: CASE EVENT DATE: 201506
